FAERS Safety Report 5905241-X (Version None)
Quarter: 2008Q4

REPORT INFORMATION
  Report Type: 
  Country: None (occurrence: None)
  Receive Date: 20081001
  Receipt Date: 20080922
  Transmission Date: 20090506
  Serious: Yes (Death, Life-Threatening)
  Sender: FDA-Public Use
  Company Number: EG-PFIZER INC-2004205232EG

PATIENT
  Sex: Male

DRUGS (13)
  1. IRINOTECAN HCL [Suspect]
     Indication: SMALL CELL LUNG CANCER STAGE UNSPECIFIED
     Dosage: DAILY DOSE:100MG
     Route: 042
     Dates: start: 20040303, end: 20040310
  2. CISPLATIN [Suspect]
     Indication: SMALL CELL LUNG CANCER STAGE UNSPECIFIED
     Dosage: DAILY DOSE:100MG
     Route: 042
     Dates: start: 20040303
  3. INSULIN [Concomitant]
     Indication: DIABETES MELLITUS
     Route: 058
  4. ATROPINE [Concomitant]
     Indication: PROPHYLAXIS
     Route: 058
  5. MANNITOL [Concomitant]
     Indication: PROPHYLAXIS
     Route: 042
     Dates: start: 20040303, end: 20040303
  6. ONDANSETRON [Concomitant]
     Indication: PROPHYLAXIS
     Route: 042
  7. GRANISETRON [Concomitant]
     Indication: PROPHYLAXIS
  8. DEXTROSE [Concomitant]
     Route: 042
     Dates: start: 20040303, end: 20040303
  9. SODIUM CHLORIDE 0.9% [Concomitant]
     Indication: PROPHYLAXIS
     Route: 042
     Dates: start: 20040303, end: 20040303
  10. POTASSIUM CHLORIDE [Concomitant]
     Indication: PROPHYLAXIS
     Route: 042
     Dates: start: 20040303, end: 20040303
  11. NEUPOGEN [Concomitant]
     Route: 058
  12. LASIX [Concomitant]
     Indication: PROPHYLAXIS
     Route: 042
     Dates: start: 20040303, end: 20040303
  13. DEXAMETHASONE [Concomitant]
     Indication: PROPHYLAXIS
     Dates: start: 20040303, end: 20040303

REACTIONS (10)
  - COMA [None]
  - DIARRHOEA [None]
  - GASTROINTESTINAL HAEMORRHAGE [None]
  - HAEMATEMESIS [None]
  - HAEMOPTYSIS [None]
  - HICCUPS [None]
  - HYPOTENSION [None]
  - MELAENA [None]
  - MULTI-ORGAN FAILURE [None]
  - RENAL FAILURE ACUTE [None]
